FAERS Safety Report 15546896 (Version 1)
Quarter: 2018Q4

REPORT INFORMATION
  Report Type: Spontaneous
  Country: US (occurrence: US)
  Receive Date: 20181024
  Receipt Date: 20181024
  Transmission Date: 20190205
  Serious: No
  Sender: FDA-Public Use
  Company Number: US-ALLERGAN-1829287US

PATIENT
  Age: 48 Year
  Sex: Female
  Weight: 63.49 kg

DRUGS (2)
  1. PYLERA [Suspect]
     Active Substance: BISMUTH SUBCITRATE POTASSIUM\METRONIDAZOLE\TETRACYCLINE HYDROCHLORIDE
     Indication: GASTRITIS BACTERIAL
     Dosage: THREE BLISTER PACKETS, QID (12 PILLS)
     Route: 065
     Dates: start: 20180518
  2. PYLERA [Suspect]
     Active Substance: BISMUTH SUBCITRATE POTASSIUM\METRONIDAZOLE\TETRACYCLINE HYDROCHLORIDE
     Dosage: THREE BLISTERS PACKETS, TID (9 PILLS)
     Route: 065
     Dates: start: 20180523

REACTIONS (8)
  - Abdominal distension [Not Recovered/Not Resolved]
  - Faeces discoloured [Unknown]
  - Ovarian cyst [Not Recovered/Not Resolved]
  - Inappropriate schedule of product administration [Unknown]
  - Lethargy [Recovering/Resolving]
  - Disturbance in attention [Not Recovered/Not Resolved]
  - Depressed mood [Unknown]
  - Nausea [Recovering/Resolving]

NARRATIVE: CASE EVENT DATE: 201805
